FAERS Safety Report 6829968-0 (Version None)
Quarter: 2010Q3

REPORT INFORMATION
  Report Type: 
  Country: None (occurrence: None)
  Receive Date: 20100711
  Receipt Date: 20100419
  Transmission Date: 20110219
  Serious: No
  Sender: FDA-Public Use
  Company Number: US-ALLERGAN-1004894US

PATIENT
  Age: 51 Year
  Sex: Female

DRUGS (1)
  1. LATISSE [Suspect]
     Indication: GROWTH OF EYELASHES
     Dosage: 1 GTT, QHS
     Route: 061

REACTIONS (4)
  - EYE IRRITATION [None]
  - EYELID OEDEMA [None]
  - EYELID SENSORY DISORDER [None]
  - OCULAR HYPERAEMIA [None]
